FAERS Safety Report 19854210 (Version 2)
Quarter: 2021Q3

REPORT INFORMATION
  Report Type: Spontaneous
  Country: US (occurrence: US)
  Receive Date: 20210920
  Receipt Date: 20210922
  Transmission Date: 20211014
  Serious: No
  Sender: FDA-Public Use
  Company Number: NVSC2021US211927

PATIENT
  Age: 43 Year
  Sex: Female

DRUGS (1)
  1. KESIMPTA [Suspect]
     Active Substance: OFATUMUMAB
     Indication: RELAPSING MULTIPLE SCLEROSIS
     Dosage: UNK, QW
     Route: 058
     Dates: start: 20210906

REACTIONS (3)
  - Headache [Unknown]
  - Pyrexia [Unknown]
  - Enuresis [Unknown]

NARRATIVE: CASE EVENT DATE: 20210906
